FAERS Safety Report 9343343 (Version 1)
Quarter: 2013Q2

REPORT INFORMATION
  Report Type: Report from Study
  Country: AU (occurrence: AU)
  Receive Date: 20130612
  Receipt Date: 20130612
  Transmission Date: 20140414
  Serious: Yes (Other)
  Sender: FDA-Public Use
  Company Number: AU-ROCHE-GNE323869

PATIENT
  Age: 83 Year
  Sex: Female

DRUGS (1)
  1. RANIBIZUMAB [Suspect]
     Indication: AGE-RELATED MACULAR DEGENERATION
     Dosage: 0.05 ML, UNK
     Route: 050
     Dates: start: 2006

REACTIONS (6)
  - Skeletal injury [Unknown]
  - Excoriation [Unknown]
  - Fall [Unknown]
  - Age-related macular degeneration [Unknown]
  - Cataract operation [Unknown]
  - Visual acuity reduced [Unknown]
